FAERS Safety Report 25555315 (Version 1)
Quarter: 2025Q3

REPORT INFORMATION
  Report Type: Spontaneous
  Country: US (occurrence: None)
  Receive Date: 20250715
  Receipt Date: 20250715
  Transmission Date: 20251020
  Serious: Yes (Hospitalization)
  Sender: FDA-CTU
  Company Number: None

PATIENT
  Age: 74 Year
  Sex: Male
  Weight: 92.5 kg

DRUGS (7)
  1. ABIRATERONE ACETATE [Suspect]
     Active Substance: ABIRATERONE ACETATE
  2. LEUPROLIDE ACETATE [Suspect]
     Active Substance: LEUPROLIDE ACETATE
  3. ALFUZOSIN [Concomitant]
     Active Substance: ALFUZOSIN
  4. ALLOPURINOL [Concomitant]
     Active Substance: ALLOPURINOL
  5. ENALAPRIL [Concomitant]
     Active Substance: ENALAPRIL
  6. PANTOPRAZOLE [Concomitant]
     Active Substance: PANTOPRAZOLE
  7. PREDNISONE [Concomitant]
     Active Substance: PREDNISONE

REACTIONS (2)
  - Blood pressure increased [None]
  - Blood pressure decreased [None]

NARRATIVE: CASE EVENT DATE: 20250527
